FAERS Safety Report 4355866-0 (Version None)
Quarter: 2004Q2

REPORT INFORMATION
  Report Type: 
  Country: None (occurrence: None)
  Receive Date: 20040511
  Receipt Date: 20040504
  Transmission Date: 20050107
  Serious: Yes (Hospitalization, Other)
  Sender: FDA-Public Use
  Company Number: 200413396US

PATIENT
  Sex: Female
  Weight: 77 kg

DRUGS (7)
  1. LANTUS [Suspect]
     Indication: DIABETES MELLITUS NON-INSULIN-DEPENDENT
     Dosage: DOSE UNIT: UNITS
     Route: 051
     Dates: start: 20040114
  2. NOVOLOG [Concomitant]
     Dosage: DOSE: UNKNOWN
  3. AVAPRO [Concomitant]
     Dosage: DOSE: UNKNOWN
  4. MAVIK [Concomitant]
     Dosage: DOSE: UNKNOWN
  5. ASPIRIN [Concomitant]
     Dosage: DOSE: UNKNOWN
  6. COREG [Concomitant]
     Dosage: DOSE: UNKNOWN
  7. GLUCOTROL [Concomitant]
     Dosage: DOSE: UNKNOWN

REACTIONS (4)
  - DIABETES MELLITUS INADEQUATE CONTROL [None]
  - FATIGUE [None]
  - HYPERTENSION [None]
  - WEIGHT INCREASED [None]
